FAERS Safety Report 4780317-1 (Version None)
Quarter: 2005Q3

REPORT INFORMATION
  Report Type: 
  Country: None (occurrence: None)
  Receive Date: 20050927
  Receipt Date: 20050915
  Transmission Date: 20060218
  Serious: Yes (Other)
  Sender: FDA-Public Use
  Company Number: 2005UW13735

PATIENT

DRUGS (1)
  1. PULMICORT RESPULES [Suspect]
     Route: 055
     Dates: start: 20020101

REACTIONS (3)
  - ALLERGIC GRANULOMATOUS ANGIITIS [None]
  - CELLULITIS [None]
  - CONTUSION [None]
